FAERS Safety Report 6203523-8 (Version None)
Quarter: 2009Q2

REPORT INFORMATION
  Report Type: 
  Country: None (occurrence: None)
  Receive Date: 20090527
  Receipt Date: 20090517
  Transmission Date: 20091009
  Serious: Yes (Hospitalization)
  Sender: FDA-Public Use
  Company Number: PHHY2009GB19404

PATIENT
  Sex: Male

DRUGS (1)
  1. CLOZARIL [Suspect]
     Indication: SCHIZOPHRENIA
     Dosage: UNK
     Dates: start: 20080602

REACTIONS (4)
  - CEREBROVASCULAR ACCIDENT [None]
  - DROOLING [None]
  - POSTURE ABNORMAL [None]
  - SPEECH DISORDER [None]
